FAERS Safety Report 19099879 (Version 1)
Quarter: 2021Q2

REPORT INFORMATION
  Report Type: Report from Study
  Country: None (occurrence: BR)
  Receive Date: 20210406
  Receipt Date: 20210406
  Transmission Date: 20210717
  Serious: Yes (Other)
  Sender: FDA-Public Use
  Company Number: BR-ABBVIE-21K-020-3843108-00

PATIENT
  Age: 14 Year
  Sex: Female
  Weight: 56 kg

DRUGS (4)
  1. HUMIRA [Suspect]
     Active Substance: ADALIMUMAB
     Route: 058
  2. LACTULOSE. [Concomitant]
     Active Substance: LACTULOSE
     Indication: ABNORMAL FAECES
  3. HUMIRA [Suspect]
     Active Substance: ADALIMUMAB
     Indication: CROHN^S DISEASE
     Dosage: LOADING DOSE, WEEK 0
     Route: 058
     Dates: start: 20200910, end: 20200910
  4. HUMIRA [Suspect]
     Active Substance: ADALIMUMAB
     Dosage: LOADING DOSE, WEEK 2
     Route: 058
     Dates: start: 20200924, end: 20200924

REACTIONS (13)
  - Faecal calprotectin increased [Not Recovered/Not Resolved]
  - Anal stenosis [Not Recovered/Not Resolved]
  - Anaemia [Recovered/Resolved]
  - Insomnia [Recovered/Resolved]
  - Crohn^s disease [Not Recovered/Not Resolved]
  - Somnolence [Recovered/Resolved]
  - Large intestinal stenosis [Not Recovered/Not Resolved]
  - Colitis [Not Recovered/Not Resolved]
  - Large intestinal ulcer [Unknown]
  - Anal ulcer [Unknown]
  - Therapeutic product effect incomplete [Not Recovered/Not Resolved]
  - Giardiasis [Not Recovered/Not Resolved]
  - Gastritis [Unknown]

NARRATIVE: CASE EVENT DATE: 202101
